FAERS Safety Report 4617697-3 (Version None)
Quarter: 2005Q1

REPORT INFORMATION
  Report Type: 
  Country: None (occurrence: None)
  Receive Date: 20050322
  Receipt Date: 20050311
  Transmission Date: 20050727
  Serious: Yes (Death, Hospitalization)
  Sender: FDA-Public Use
  Company Number: STA-AE-04-MTX-614

PATIENT
  Age: 75 Year
  Sex: Female

DRUGS (8)
  1. RHEUMATREX [Suspect]
     Dosage: 2 MG WEEKLY, PO; 2 MG WEEKLY, PO; 4 MG WEEKLY, PO; 6 MG WEEKLY, PO
     Route: 048
     Dates: end: 20030101
  2. RHEUMATREX [Suspect]
     Dosage: 2 MG WEEKLY, PO; 2 MG WEEKLY, PO; 4 MG WEEKLY, PO; 6 MG WEEKLY, PO
     Route: 048
     Dates: end: 20030301
  3. RHEUMATREX [Suspect]
     Dosage: 2 MG WEEKLY, PO; 2 MG WEEKLY, PO; 4 MG WEEKLY, PO; 6 MG WEEKLY, PO
     Route: 048
     Dates: start: 20030501, end: 20030322
  4. RHEUMATREX [Suspect]
     Dosage: 2 MG WEEKLY, PO; 2 MG WEEKLY, PO; 4 MG WEEKLY, PO; 6 MG WEEKLY, PO
     Route: 048
     Dates: start: 20030623, end: 20030702
  5. METHYLPREDNISOLONE [Concomitant]
  6. MISOPROSTOL [Concomitant]
  7. ROXATIDINE ACETATE HCL [Concomitant]
  8. CALCITRIOL [Concomitant]

REACTIONS (24)
  - BLOOD UREA INCREASED [None]
  - BONE MARROW DEPRESSION [None]
  - C-REACTIVE PROTEIN INCREASED [None]
  - CARDIAC ARREST [None]
  - CARDIOMEGALY [None]
  - CYTOMEGALOVIRUS INFECTION [None]
  - DIARRHOEA [None]
  - DYSPNOEA [None]
  - GASTROINTESTINAL DISORDER [None]
  - HAEMODIALYSIS [None]
  - HISTIOCYTOSIS HAEMATOPHAGIC [None]
  - HYPOPROTEINAEMIA [None]
  - JOINT DISLOCATION [None]
  - LUNG DISORDER [None]
  - OESOPHAGEAL DISORDER [None]
  - PANCYTOPENIA [None]
  - PLEURAL EFFUSION [None]
  - PULMONARY EMBOLISM [None]
  - PYREXIA [None]
  - RENAL IMPAIRMENT [None]
  - SPINAL DISORDER [None]
  - URINE OUTPUT DECREASED [None]
  - VENA CAVA THROMBOSIS [None]
  - VOMITING [None]
